FAERS Safety Report 23349423 (Version 1)
Quarter: 2023Q4

REPORT INFORMATION
  Report Type: Spontaneous
  Country: NL (occurrence: NL)
  Receive Date: 20231229
  Receipt Date: 20231229
  Transmission Date: 20240109
  Serious: Yes (Other)
  Sender: FDA-Public Use
  Company Number: None

PATIENT
  Age: 27 Year
  Sex: Female
  Weight: 53 kg

DRUGS (1)
  1. MOMETASONE FUROATE [Suspect]
     Active Substance: MOMETASONE FUROATE
     Indication: Perioral dermatitis
     Dosage: MOMETASON ZALF 1MG/G (MILLIGRAM PER GRAM), 2 TIMES PER DAY FACE
     Dates: start: 20220301, end: 20220711

REACTIONS (1)
  - Topical steroid withdrawal reaction [Not Recovered/Not Resolved]
